FAERS Safety Report 4953581-3 (Version None)
Quarter: 2006Q1

REPORT INFORMATION
  Report Type: 
  Country: None (occurrence: None)
  Receive Date: 20060324
  Receipt Date: 20050414
  Transmission Date: 20060701
  Serious: Yes (Hospitalization, Other)
  Sender: FDA-Public Use
  Company Number: US-MERCK-0504USA03091

PATIENT
  Age: 41 Year
  Sex: Male
  Weight: 82 kg

DRUGS (6)
  1. VIOXX [Suspect]
     Indication: ARTHRITIS
     Route: 048
     Dates: end: 20040901
  2. VIOXX [Suspect]
     Route: 048
     Dates: end: 20040901
  3. XANAX [Concomitant]
     Indication: ANXIETY
     Route: 065
     Dates: start: 20040101
  4. XANAX [Concomitant]
     Indication: DEPRESSION
     Route: 065
     Dates: start: 20040101
  5. CYMBALTA [Concomitant]
     Indication: ANXIETY
     Route: 065
     Dates: start: 20040101
  6. CYMBALTA [Concomitant]
     Indication: DEPRESSION
     Route: 065
     Dates: start: 20040101

REACTIONS (8)
  - ANXIETY [None]
  - BALANCE DISORDER [None]
  - BONE DISORDER [None]
  - CEREBROVASCULAR ACCIDENT [None]
  - DEPRESSION [None]
  - EMOTIONAL DISTRESS [None]
  - INJURY [None]
  - ROTATOR CUFF SYNDROME [None]
